FAERS Safety Report 7658890-5 (Version None)
Quarter: 2011Q3

REPORT INFORMATION
  Report Type: 
  Country: None (occurrence: None)
  Receive Date: 20110805
  Receipt Date: 20110802
  Transmission Date: 20111222
  Serious: Yes (Hospitalization, Other)
  Sender: FDA-Public Use
  Company Number: US-PFIZER INC-2011114102

PATIENT
  Sex: Male
  Weight: 104.31 kg

DRUGS (5)
  1. GEODON [Suspect]
     Indication: ANXIETY
  2. AMBIEN [Concomitant]
     Dosage: 10 MG, 1X/DAY,  AT HOURS OF SLEEP
  3. GEODON [Suspect]
     Indication: DEPRESSION
     Dosage: 40 MG, 2X/DAY CAPSULE
     Route: 048
     Dates: start: 20100608, end: 20100610
  4. ALBUTEROL SULFATE AUTOHALER [Concomitant]
     Indication: ASTHMA
     Dosage: UNK
  5. SOMA [Concomitant]
     Dosage: UNK

REACTIONS (11)
  - CEREBROVASCULAR ACCIDENT [None]
  - DYSSTASIA [None]
  - HYPERTENSION [None]
  - DYSPHAGIA [None]
  - MUSCLE RIGIDITY [None]
  - HYPERSENSITIVITY [None]
  - ANXIETY [None]
  - PAIN IN EXTREMITY [None]
  - MUSCLE SPASMS [None]
  - THROAT TIGHTNESS [None]
  - DYSPNOEA [None]
